FAERS Safety Report 23019940 (Version 1)
Quarter: 2023Q4

REPORT INFORMATION
  Report Type: Spontaneous
  Country: US (occurrence: US)
  Receive Date: 20231003
  Receipt Date: 20231003
  Transmission Date: 20240110
  Serious: Yes (Other)
  Sender: FDA-Public Use
  Company Number: US-BAYER-2023A136358

PATIENT
  Age: 29 Year
  Sex: Female

DRUGS (3)
  1. ASPIRIN [Suspect]
     Active Substance: ASPIRIN
     Indication: Systemic lupus erythematosus
  2. HYDROXYCHLOROQUINE [Concomitant]
     Active Substance: HYDROXYCHLOROQUINE
     Dosage: 200 MG Q 12 HOURS
  3. OXYTOCIN [Concomitant]
     Active Substance: OXYTOCIN
     Route: 042

REACTIONS (8)
  - Peripartum haemorrhage [None]
  - Failed induction of labour [None]
  - Uterine atony [None]
  - Placenta accreta [None]
  - Maternal exposure during pregnancy [None]
  - Contraindicated product administered [None]
  - Off label use [None]
  - Uterine hypotonus [None]
